FAERS Safety Report 8344177-4 (Version None)
Quarter: 2012Q2

REPORT INFORMATION
  Report Type: 
  Country: None (occurrence: None)
  Receive Date: 20120508
  Receipt Date: 20120430
  Transmission Date: 20120825
  Serious: Yes (Hospitalization)
  Sender: FDA-Public Use
  Company Number: NO-ASTRAZENECA-2012SE27909

PATIENT
  Age: 62 Year
  Sex: Male

DRUGS (10)
  1. OXAZEPAM [Concomitant]
     Route: 048
  2. LAMICTAL [Concomitant]
     Route: 048
  3. AMLODIPINE [Concomitant]
     Route: 048
  4. CRESTOR [Suspect]
     Indication: HYPERCHOLESTEROLAEMIA
     Route: 048
     Dates: start: 20111101
  5. VITAMIN B-12 [Concomitant]
     Dosage: EVERY THREE MONTHS
  6. LOSARTAN AND DIURETICS [Concomitant]
     Dosage: 100 MG LOSARTAN, 25 MG HCT DAILY
     Route: 048
  7. ASPIRIN [Concomitant]
     Route: 048
  8. QUETIAPINE [Concomitant]
     Route: 048
  9. METOPROLOL TARTRATE [Concomitant]
     Route: 048
  10. PLAVIX [Concomitant]
     Route: 048

REACTIONS (9)
  - GENERAL PHYSICAL HEALTH DETERIORATION [None]
  - DISTURBANCE IN ATTENTION [None]
  - FEELING HOT [None]
  - ANXIETY [None]
  - ASTHENIA [None]
  - OVERDOSE [None]
  - TYPE 2 DIABETES MELLITUS [None]
  - MUSCLE SPASMS [None]
  - FATIGUE [None]
